FAERS Safety Report 12843630 (Version 2)
Quarter: 2016Q4

REPORT INFORMATION
  Report Type: Report from Study
  Country: ES (occurrence: ES)
  Receive Date: 20161013
  Receipt Date: 20161214
  Transmission Date: 20170207
  Serious: No
  Sender: FDA-Public Use
  Company Number: ES-AMGEN-ESPNI2016138622

PATIENT
  Sex: Male

DRUGS (1)
  1. BLINATUMOMAB [Suspect]
     Active Substance: BLINATUMOMAB
     Indication: PRODUCT USED FOR UNKNOWN INDICATION
     Dosage: UNK INFUSION
     Route: 065

REACTIONS (3)
  - Hepatic pain [Recovering/Resolving]
  - Cell death [Recovering/Resolving]
  - Hepatomegaly [Unknown]
